FAERS Safety Report 20547017 (Version 2)
Quarter: 2022Q1

REPORT INFORMATION
  Report Type: Spontaneous
  Country: US (occurrence: US)
  Receive Date: 20220303
  Receipt Date: 20220316
  Transmission Date: 20220424
  Serious: No
  Sender: FDA-Public Use
  Company Number: US-GSKCCFUS-Case-01309409_AE-76238

PATIENT
  Sex: Female

DRUGS (1)
  1. BENLYSTA [Suspect]
     Active Substance: BELIMUMAB
     Indication: Product used for unknown indication
     Dosage: 200 MG, WE
     Route: 058
     Dates: start: 2019

REACTIONS (5)
  - Wrong technique in device usage process [Unknown]
  - Accidental exposure to product [Unknown]
  - Underdose [Unknown]
  - Product dose omission issue [Unknown]
  - Product complaint [Unknown]
